FAERS Safety Report 7866044-2 (Version None)
Quarter: 2011Q4

REPORT INFORMATION
  Report Type: 
  Country: None (occurrence: None)
  Receive Date: 20111028
  Receipt Date: 20110413
  Transmission Date: 20120403
  Serious: No
  Sender: FDA-Public Use
  Company Number: US-GLAXOSMITHKLINE-A0922862A

PATIENT
  Age: 72 Year
  Sex: Female

DRUGS (8)
  1. ADVAIR DISKUS 100/50 [Suspect]
     Indication: PRODUCT USED FOR UNKNOWN INDICATION
     Dosage: 1PUFF TWICE PER DAY
     Route: 055
  2. EFFEXOR [Concomitant]
  3. KLONOPIN [Concomitant]
  4. VESICARE [Concomitant]
  5. ESTRACE [Concomitant]
  6. COZAAR [Concomitant]
  7. FOSAMAX [Concomitant]
  8. FLONASE [Concomitant]

REACTIONS (3)
  - DYSPHONIA [None]
  - PRODUCT QUALITY ISSUE [None]
  - COUGH [None]
